FAERS Safety Report 6213871-3 (Version None)
Quarter: 2009Q2

REPORT INFORMATION
  Report Type: 
  Country: None (occurrence: None)
  Receive Date: 20090602
  Receipt Date: 20090602
  Transmission Date: 20091009
  Serious: No
  Sender: FDA-Public Use
  Company Number: None

PATIENT
  Age: 81 Year
  Sex: Female
  Weight: 70.7611 kg

DRUGS (2)
  1. ALENDRONATE SODIUM [Suspect]
     Indication: OSTEOPOROSIS
     Dosage: ONE IN AM WEEKLY PO
     Route: 048
     Dates: start: 20090504, end: 20090512
  2. ACTONEL [Suspect]
     Indication: OSTEOPOROSIS
     Dosage: ONE IN AM WEEKLY PO
     Route: 048
     Dates: start: 20090522, end: 20090529

REACTIONS (1)
  - PAIN IN EXTREMITY [None]
